FAERS Safety Report 7158843-X (Version None)
Quarter: 2010Q4

REPORT INFORMATION
  Report Type: 
  Country: None (occurrence: None)
  Receive Date: 20101214
  Receipt Date: 20100709
  Transmission Date: 20110411
  Serious: No
  Sender: FDA-Public Use
  Company Number: US-ASTRAZENECA-2010SE32286

PATIENT
  Sex: Male

DRUGS (4)
  1. CRESTOR [Suspect]
     Route: 048
     Dates: end: 20100501
  2. AMLODIPINE [Concomitant]
     Indication: BLOOD PRESSURE
  3. ASPIRIN [Concomitant]
     Indication: PROPHYLAXIS
  4. FOLIC ACID [Concomitant]
     Indication: PROPHYLAXIS

REACTIONS (3)
  - HYPOAESTHESIA [None]
  - HYPOAESTHESIA FACIAL [None]
  - MYALGIA [None]
